FAERS Safety Report 4627815-9 (Version None)
Quarter: 2005Q2

REPORT INFORMATION
  Report Type: 
  Country: None (occurrence: None)
  Receive Date: 20050404
  Receipt Date: 20050404
  Transmission Date: 20051028
  Serious: Yes (Death)
  Sender: FDA-Public Use
  Company Number: None

PATIENT
  Age: 20 Year
  Sex: Male
  Weight: 95 kg

DRUGS (10)
  1. SEVOFLURANE [Suspect]
     Indication: GENERAL ANAESTHESIA
     Dosage: 0-2% INHALED
     Route: 055
     Dates: start: 20050112
  2. N2O [Concomitant]
  3. PROPOFOL [Concomitant]
  4. ROCURONIUM [Concomitant]
  5. DROPERIDOL [Concomitant]
  6. DECADRON [Concomitant]
  7. ONDANSETRON [Concomitant]
  8. LABETALOL [Concomitant]
  9. OXYGEN [Concomitant]
  10. MORPHINE SULFATE [Concomitant]

REACTIONS (1)
  - HYPERTHERMIA MALIGNANT [None]
